FAERS Safety Report 10567321 (Version 2)
Quarter: 2014Q4

REPORT INFORMATION
  Report Type: Spontaneous
  Country: US (occurrence: US)
  Receive Date: 20141106
  Receipt Date: 20141219
  Transmission Date: 20150529
  Serious: No
  Sender: FDA-Public Use
  Company Number: US-009507513-1410USA016182

PATIENT
  Age: 64 Year
  Sex: Male
  Weight: 85.26 kg

DRUGS (2)
  1. DECADRON [Suspect]
     Active Substance: DEXAMETHASONE
     Indication: VOMITING
     Dosage: UNK
     Route: 042
     Dates: start: 20141009, end: 20141009
  2. EMEND [Suspect]
     Active Substance: APREPITANT
     Indication: VOMITING
     Dosage: 150 MG, UNK
     Route: 042
     Dates: start: 20141009, end: 20141009

REACTIONS (5)
  - Hypotension [Recovered/Resolved]
  - Hyperhidrosis [Recovered/Resolved]
  - Back pain [Recovered/Resolved]
  - Tachycardia [Recovered/Resolved]
  - Chest pain [Recovered/Resolved]

NARRATIVE: CASE EVENT DATE: 20141009
